FAERS Safety Report 23442385 (Version 1)
Quarter: 2024Q1

REPORT INFORMATION
  Report Type: Spontaneous
  Country: None (occurrence: US)
  Receive Date: 20240125
  Receipt Date: 20240125
  Transmission Date: 20240409
  Serious: Yes (Life-Threatening)
  Sender: FDA-Public Use
  Company Number: US-i-Health, Inc.-2151994

PATIENT
  Age: 67 Year
  Sex: Female
  Weight: 71.818 kg

DRUGS (1)
  1. AZO YEAST PLUS [Suspect]
     Active Substance: HOMEOPATHICS
     Indication: Fungal infection
     Dates: start: 20240102, end: 20240102

REACTIONS (1)
  - Hypertensive urgency [Recovered/Resolved]

NARRATIVE: CASE EVENT DATE: 20240102
